FAERS Safety Report 9264660 (Version 1)
Quarter: 2013Q2

REPORT INFORMATION
  Report Type: Spontaneous
  Country: US (occurrence: US)
  Receive Date: 20130501
  Receipt Date: 20130501
  Transmission Date: 20140414
  Serious: No
  Sender: FDA-Public Use
  Company Number: US-BIOGENIDEC-2013BI038584

PATIENT
  Sex: Female

DRUGS (1)
  1. TYSABRI [Suspect]
     Indication: MULTIPLE SCLEROSIS
     Route: 042
     Dates: start: 20120216

REACTIONS (4)
  - Neck pain [Recovered/Resolved]
  - Muscle spasms [Recovered/Resolved]
  - Cardiac pacemaker battery replacement [Recovered/Resolved]
  - Rash [Recovered/Resolved]
